FAERS Safety Report 23401251 (Version 2)
Quarter: 2024Q4

REPORT INFORMATION
  Report Type: Spontaneous
  Country: US (occurrence: US)
  Receive Date: 20240115
  Receipt Date: 20241018
  Transmission Date: 20250114
  Serious: No
  Sender: ROCHE
  Company Number: US-ROCHE-3327660

PATIENT
  Age: 35 Year
  Sex: Female

DRUGS (2)
  1. XOLAIR [Suspect]
     Active Substance: OMALIZUMAB
     Indication: Urticaria
     Route: 058
     Dates: start: 202105
  2. XOLAIR [Suspect]
     Active Substance: OMALIZUMAB
     Dosage: XOLAIR FREQUENCY WAS CHANGED TO XOLAIR 300 MG SUBCUTANEOUSLY ADMINISTERED EVERY TWO WEEKS ON OCT/202
     Route: 058
     Dates: start: 202110

REACTIONS (3)
  - Maternal exposure during pregnancy [Unknown]
  - Abortion [Unknown]
  - Maternal exposure before pregnancy [Unknown]
